FAERS Safety Report 24569317 (Version 4)
Quarter: 2024Q4

REPORT INFORMATION
  Report Type: Spontaneous
  Country: AR (occurrence: AR)
  Receive Date: 20241031
  Receipt Date: 20241210
  Transmission Date: 20250114
  Serious: No
  Sender: PFIZER
  Company Number: AR-PFIZER INC-202400288919

PATIENT
  Age: 7 Year
  Sex: Male

DRUGS (1)
  1. NGENLA [Suspect]
     Active Substance: SOMATROGON-GHLA
     Indication: Growth hormone deficiency
     Dosage: 5 MG, WEEKLY
     Dates: start: 20241006

REACTIONS (2)
  - Application site pain [Unknown]
  - Needle issue [Unknown]

NARRATIVE: CASE EVENT DATE: 20241028
